FAERS Safety Report 8272534-3 (Version None)
Quarter: 2012Q2

REPORT INFORMATION
  Report Type: 
  Country: None (occurrence: None)
  Receive Date: 20120410
  Receipt Date: 20120329
  Transmission Date: 20120825
  Serious: Yes (Death, Life-Threatening, Hospitalization)
  Sender: FDA-Public Use
  Company Number: CA-ROCHE-1055725

PATIENT
  Age: 63 Year
  Sex: Female

DRUGS (17)
  1. RITUXAN [Suspect]
     Dosage: (THE PATIENT RECEIVED RITUXIMAB ON 13 JANUARY 2012).
     Route: 042
     Dates: start: 20111230
  2. PROCTOSONE [Concomitant]
  3. CEFAZOLIN [Concomitant]
     Route: 042
  4. CEFTAZIDIME [Concomitant]
  5. ALBUTEROL [Concomitant]
  6. PRIMAQUINE [Concomitant]
  7. LEVOFLOXACIN [Concomitant]
     Route: 048
  8. LANSOPRAZOLE [Concomitant]
  9. PIPERACILLIN AND TAZOBACTAM [Concomitant]
  10. NABILONE [Concomitant]
  11. PREDNISONE TAB [Concomitant]
  12. HYDROMORPHONE HCL [Concomitant]
  13. RITUXAN [Suspect]
     Indication: EPSTEIN-BARR VIRUS INFECTION
     Dosage: (THE PATIENT RECEIVED RITUXIMAB ON 21 JULY 2011,  25 JULY 2011 AND 27 JULY 2011).
     Dates: start: 20110719
  14. IPRATROPIUM BROMIDE [Concomitant]
  15. CLINDAMYCIN [Concomitant]
     Route: 042
  16. NYSTATIN [Concomitant]
  17. SOLU-MEDROL [Concomitant]

REACTIONS (6)
  - LEUKOPENIA [None]
  - NEUTROPENIA [None]
  - RESPIRATORY FAILURE [None]
  - COGNITIVE DISORDER [None]
  - PNEUMOCYSTIS JIROVECI PNEUMONIA [None]
  - THROMBOCYTOPENIA [None]
